FAERS Safety Report 15106772 (Version 5)
Quarter: 2019Q2

REPORT INFORMATION
  Report Type: Spontaneous
  Country: US (occurrence: US)
  Receive Date: 20180704
  Receipt Date: 20190411
  Transmission Date: 20190711
  Serious: Yes (Hospitalization, Other)
  Sender: FDA-Public Use
  Company Number: US-SA-2018SA172526

PATIENT
  Sex: Male

DRUGS (34)
  1. CREATINE MONOHYDRATE [Concomitant]
     Active Substance: CREATINE MONOHYDRATE
  2. GINGER ROOT [ZINGIBER OFFICINALE ROOT] [Concomitant]
     Dosage: 550 MG
  3. HYDROCHLOROTHIAZIDE. [Concomitant]
     Active Substance: HYDROCHLOROTHIAZIDE
  4. AUBAGIO [Suspect]
     Active Substance: TERIFLUNOMIDE
     Dosage: 14 MG, QD
     Route: 048
     Dates: start: 20180511
  5. AUBAGIO [Suspect]
     Active Substance: TERIFLUNOMIDE
     Dosage: 14 MG QD
     Route: 048
  6. ORPHENADRINE [Concomitant]
     Active Substance: ORPHENADRINE
     Dosage: 100 MG
  7. IRON [Concomitant]
     Active Substance: IRON
     Dosage: 28 MG
  8. NORCO [Concomitant]
     Active Substance: ACETAMINOPHEN\HYDROCODONE BITARTRATE
  9. VITAMIN B1 [THIAMINE HYDROCHLORIDE] [Concomitant]
     Dosage: 100 MG
  10. VITAMIN D3 [Concomitant]
     Active Substance: CHOLECALCIFEROL
     Dosage: 1000 U,TAB
     Route: 048
  11. VITAMIN E NOS [Concomitant]
     Active Substance: .ALPHA.-TOCOPHEROL
     Dosage: 1000 U
  12. CALCIUM [Concomitant]
     Active Substance: CALCIUM
     Dosage: 600 MG
  13. LORAZEPAM. [Concomitant]
     Active Substance: LORAZEPAM
  14. NITROFURANTOIN. [Concomitant]
     Active Substance: NITROFURANTOIN
     Dosage: 100 MG,CAPSULE
  15. WARFARIN SODIUM. [Concomitant]
     Active Substance: WARFARIN SODIUM
     Dosage: 4 MG
  16. VITAMIN C [Concomitant]
     Active Substance: ASCORBIC ACID
     Dosage: 1000 MG
  17. VITAMIN B12 [Concomitant]
     Active Substance: CYANOCOBALAMIN
     Dosage: 3000 UG,SUB
  18. BACLOFEN. [Concomitant]
     Active Substance: BACLOFEN
  19. TRAMADOL HCL [Concomitant]
     Active Substance: TRAMADOL HYDROCHLORIDE
  20. AUBAGIO [Suspect]
     Active Substance: TERIFLUNOMIDE
     Indication: MULTIPLE SCLEROSIS
     Dosage: 14 MG, QD
     Route: 048
     Dates: start: 201801
  21. DULOXETINE. [Concomitant]
     Active Substance: DULOXETINE
     Dosage: 60 MG
  22. OXYBUTYNIN CHLORIDE. [Concomitant]
     Active Substance: OXYBUTYNIN CHLORIDE
     Dosage: 5 MG
     Route: 048
  23. TRIMETHOPRIM. [Concomitant]
     Active Substance: TRIMETHOPRIM
     Dosage: 500 MG
  24. LIVERCAP [Concomitant]
     Dosage: 500 MG
  25. LOMOTIL [LOPERAMIDE HYDROCHLORIDE] [Concomitant]
     Dosage: 2.5-0.02 MG
  26. LYRICA [Concomitant]
     Active Substance: PREGABALIN
     Dosage: 300 MG
  27. ZEAXANTHIN [Concomitant]
     Active Substance: ZEAXANTHIN
  28. CINNAMON BARK [Concomitant]
     Dosage: 500 MG
     Route: 048
  29. FISH OIL [Concomitant]
     Active Substance: FISH OIL
     Dosage: 1360 MG
  30. LUTEIN + [Concomitant]
     Dosage: 20 MG,CAP
  31. OLIVE LEAF EXTRACT [Concomitant]
     Dosage: 250 MG
     Route: 048
  32. AUBAGIO [Suspect]
     Active Substance: TERIFLUNOMIDE
     Dosage: 14 MG QD
     Route: 048
     Dates: start: 20180416
  33. BACTRIM [Concomitant]
     Active Substance: SULFAMETHOXAZOLE\TRIMETHOPRIM
     Dosage: 80-400 MG
  34. CHOLINE CHLORIDE [Concomitant]
     Active Substance: CHOLINE CHLORIDE

REACTIONS (6)
  - Product dose omission [Not Recovered/Not Resolved]
  - Urinary tract infection [Not Recovered/Not Resolved]
  - Hepatic enzyme increased [Not Recovered/Not Resolved]
  - Somnolence [Not Recovered/Not Resolved]
  - Thrombosis [Not Recovered/Not Resolved]
  - Diarrhoea [Not Recovered/Not Resolved]
